FAERS Safety Report 5877077-X (Version None)
Quarter: 2008Q3

REPORT INFORMATION
  Report Type: 
  Country: None (occurrence: None)
  Receive Date: 20080910
  Receipt Date: 20080903
  Transmission Date: 20090109
  Serious: Yes (Hospitalization)
  Sender: FDA-Public Use
  Company Number: PHEH2008US07886

PATIENT
  Age: 80 Year
  Sex: Female

DRUGS (1)
  1. ZOMETA [Suspect]
     Dosage: 4 MG, MONTHLY

REACTIONS (4)
  - INFECTION [None]
  - OSTEONECROSIS [None]
  - TOOTH EXTRACTION [None]
  - WOUND INFECTION STAPHYLOCOCCAL [None]
